FAERS Safety Report 13379470 (Version 3)
Quarter: 2017Q2

REPORT INFORMATION
  Report Type: Spontaneous
  Country: US (occurrence: US)
  Receive Date: 20170328
  Receipt Date: 20170426
  Transmission Date: 20170830
  Serious: Yes (Other)
  Sender: FDA-Public Use
  Company Number: US-GILEAD-2017-0264080

PATIENT
  Age: 66 Year
  Sex: Male

DRUGS (3)
  1. DACLATASVIR. [Concomitant]
     Active Substance: DACLATASVIR
     Indication: HEPATITIS C
     Dosage: UNK UNKNOWN, UNK
     Route: 065
     Dates: start: 20160420
  2. RIBAVIRIN. [Concomitant]
     Active Substance: RIBAVIRIN
     Indication: HEPATITIS C
     Dosage: UNK UNKNOWN, UNK
     Route: 065
     Dates: start: 20160420
  3. SOVALDI [Suspect]
     Active Substance: SOFOSBUVIR
     Indication: HEPATITIS C
     Dosage: UNK UNKNOWN, UNK
     Route: 065
     Dates: start: 20160420

REACTIONS (1)
  - Hepatitis B reactivation [Unknown]
